FAERS Safety Report 16132797 (Version 2)
Quarter: 2019Q3

REPORT INFORMATION
  Report Type: Spontaneous
  Country: US (occurrence: US)
  Receive Date: 20190329
  Receipt Date: 20190702
  Transmission Date: 20191004
  Serious: No
  Sender: FDA-Public Use
  Company Number: US-PFIZER INC-2019092262

PATIENT
  Age: 39 Year
  Sex: Female

DRUGS (3)
  1. XELJANZ XR [Suspect]
     Active Substance: TOFACITINIB CITRATE
     Dosage: UNK (BEGIN XELJANZ 1/2 TABLET WITH FOOD AT SUPPER X 4 DAYS, THEN 1 TAB/DAY)
  2. XELJANZ XR [Suspect]
     Active Substance: TOFACITINIB CITRATE
     Dosage: 11 MG, UNK
     Dates: start: 20190101
  3. SPRINTEC [Concomitant]
     Active Substance: ETHINYL ESTRADIOL\NORGESTIMATE
     Indication: CONTRACEPTION
     Dosage: UNK

REACTIONS (4)
  - Wrong technique in product usage process [Unknown]
  - Menstruation irregular [Unknown]
  - Weight increased [Recovering/Resolving]
  - Therapeutic product effect incomplete [Unknown]
